FAERS Safety Report 21267016 (Version 1)
Quarter: 2022Q3

REPORT INFORMATION
  Report Type: Spontaneous
  Country: US (occurrence: US)
  Receive Date: 20220829
  Receipt Date: 20220829
  Transmission Date: 20221026
  Serious: No
  Sender: FDA-Public Use
  Company Number: US-ORGANON-O2208USA001824

PATIENT
  Sex: Female

DRUGS (6)
  1. FOLLISTIM AQ [Suspect]
     Active Substance: FOLLITROPIN
     Indication: Infertility female
     Dosage: 300 UNT/O.36 ML 1=1, INJECT 150 TO 375 UNIT UNDER THE SKIN (SUBCUTANEOUS INJECTION) EVERY DAY AS DIR
     Route: 058
     Dates: start: 20220727
  2. PREGNYL [Concomitant]
     Active Substance: CHORIOGONADOTROPIN ALFA
     Dosage: 10000 UNIT MDV60
  3. WATER FOR INJECTION [Concomitant]
     Active Substance: WATER
     Dosage: UNK
  4. PROGESTERONE [Concomitant]
     Active Substance: PROGESTERONE
     Dosage: 50 MG/ML MDV 10 ML
  5. LEUPROLIDE ACETATE [Concomitant]
     Active Substance: LEUPROLIDE ACETATE
     Dosage: 1 MG/0.2ML MDV 1=2.8
  6. MENOPUR [Concomitant]
     Active Substance: FOLLITROPIN\LUTEINIZING HORMONE
     Dosage: 75 IU SDV W/Q-CAP

REACTIONS (3)
  - Vomiting [Unknown]
  - Headache [Unknown]
  - Nausea [Unknown]
